FAERS Safety Report 13154421 (Version 1)
Quarter: 2017Q1

REPORT INFORMATION
  Report Type: Report from Study
  Country: US (occurrence: US)
  Receive Date: 20170126
  Receipt Date: 20170126
  Transmission Date: 20170428
  Serious: No
  Sender: FDA-Public Use
  Company Number: US-AMGEN-USASL2016107475

PATIENT
  Age: 62 Year
  Sex: Male

DRUGS (6)
  1. KYPROLIS [Suspect]
     Active Substance: CARFILZOMIB
     Indication: PLASMA CELL MYELOMA
     Dosage: 120 MG, UNK
     Route: 065
     Dates: start: 201605, end: 2016
  2. KYPROLIS [Suspect]
     Active Substance: CARFILZOMIB
     Dosage: UNK, ON DAY ONE, TWO, EIGHT, NINE, FIFTEEN, AND SIXTEEN IN EVERY TWENTY EIGHT DAYS
     Route: 065
     Dates: start: 2016
  3. ACYCLOVIR. [Concomitant]
     Active Substance: ACYCLOVIR
     Dosage: UNK
  4. DEXAMETHASONE. [Concomitant]
     Active Substance: DEXAMETHASONE
     Dosage: UNK
  5. KYPROLIS [Suspect]
     Active Substance: CARFILZOMIB
     Dosage: 96 MG, UNK
     Route: 065
     Dates: start: 2016, end: 2016
  6. METFORMIN [Concomitant]
     Active Substance: METFORMIN HYDROCHLORIDE
     Indication: BLOOD GLUCOSE ABNORMAL
     Dosage: UNK

REACTIONS (2)
  - Anaemia [Unknown]
  - Platelet count decreased [Unknown]

NARRATIVE: CASE EVENT DATE: 2016
